FAERS Safety Report 13997755 (Version 1)
Quarter: 2017Q3

REPORT INFORMATION
  Report Type: Spontaneous
  Country: US (occurrence: US)
  Receive Date: 20170921
  Receipt Date: 20170921
  Transmission Date: 20171128
  Serious: No
  Sender: FDA-Public Use
  Company Number: US-PFIZER INC-2017407454

PATIENT
  Age: 63 Year
  Sex: Female

DRUGS (42)
  1. PRISTIQ EXTENDED-RELEASE [Suspect]
     Active Substance: DESVENLAFAXINE SUCCINATE
     Dosage: UNK
  2. PROVERA [Suspect]
     Active Substance: MEDROXYPROGESTERONE ACETATE
     Dosage: UNK
  3. CYMBALTA [Suspect]
     Active Substance: DULOXETINE HYDROCHLORIDE
     Dosage: UNK
  4. LAMOTRIGINE. [Suspect]
     Active Substance: LAMOTRIGINE
     Dosage: UNK
  5. NUCYNTA [Suspect]
     Active Substance: TAPENTADOL HYDROCHLORIDE
     Dosage: UNK
  6. TIMOLOL. [Suspect]
     Active Substance: TIMOLOL
     Dosage: UNK
  7. VENLAFAXINE HCL [Suspect]
     Active Substance: VENLAFAXINE HYDROCHLORIDE
     Dosage: UNK
  8. CLONIDINE. [Suspect]
     Active Substance: CLONIDINE
     Dosage: UNK
  9. AMITRIPTYLINE [Suspect]
     Active Substance: AMITRIPTYLINE
     Dosage: UNK
  10. BUPROPION. [Suspect]
     Active Substance: BUPROPION
     Dosage: UNK
  11. PROVIGIL [Suspect]
     Active Substance: MODAFINIL
     Dosage: UNK
  12. REMERON [Suspect]
     Active Substance: MIRTAZAPINE
     Dosage: UNK
  13. TRAZODONE [Suspect]
     Active Substance: TRAZODONE HYDROCHLORIDE
     Dosage: UNK
  14. BUMEX [Suspect]
     Active Substance: BUMETANIDE
     Dosage: UNK
  15. CITALOPRAM [Suspect]
     Active Substance: CITALOPRAM HYDROBROMIDE
     Dosage: UNK
  16. CODEINE [Suspect]
     Active Substance: CODEINE
     Dosage: UNK
  17. IMIPRAMINE [Suspect]
     Active Substance: IMIPRAMINE
     Dosage: UNK
  18. NEFAZODONE [Suspect]
     Active Substance: NEFAZODONE
     Dosage: UNK
  19. RISPERIDONE. [Suspect]
     Active Substance: RISPERIDONE
     Dosage: UNK
  20. SANSERT [Suspect]
     Active Substance: METHYSERGIDE MALEATE
     Dosage: UNK
  21. ZYPREXA [Suspect]
     Active Substance: OLANZAPINE
     Dosage: UNK
  22. METOCLOPRAMIDE HCL [Suspect]
     Active Substance: METOCLOPRAMIDE HYDROCHLORIDE
     Dosage: UNK
  23. METOPROLOL TARTRATE. [Suspect]
     Active Substance: METOPROLOL TARTRATE
     Dosage: UNK
  24. LATUDA [Suspect]
     Active Substance: LURASIDONE HYDROCHLORIDE
     Dosage: UNK
  25. NORPRAMIN [Suspect]
     Active Substance: DESIPRAMINE HYDROCHLORIDE
     Dosage: UNK
  26. SERTRALINE HCL [Suspect]
     Active Substance: SERTRALINE HYDROCHLORIDE
     Dosage: UNK
  27. CYCLOBENZAPRINE. [Suspect]
     Active Substance: CYCLOBENZAPRINE
     Dosage: UNK
  28. NARDIL [Suspect]
     Active Substance: PHENELZINE SULFATE
     Dosage: UNK
  29. ABILIFY [Suspect]
     Active Substance: ARIPIPRAZOLE
     Dosage: UNK
  30. FLUOXETINE [Suspect]
     Active Substance: FLUOXETINE HYDROCHLORIDE
     Dosage: UNK
  31. LUVOX [Suspect]
     Active Substance: FLUVOXAMINE MALEATE
     Dosage: UNK
  32. PAXIL [Suspect]
     Active Substance: PAROXETINE HYDROCHLORIDE
     Dosage: UNK
  33. PROTRIPTYLINE [Suspect]
     Active Substance: PROTRIPTYLINE
     Dosage: UNK
  34. QUETIAPINE. [Suspect]
     Active Substance: QUETIAPINE
     Dosage: UNK
  35. SIMVASTATIN. [Suspect]
     Active Substance: SIMVASTATIN
     Dosage: UNK
  36. TIZANIDINE. [Suspect]
     Active Substance: TIZANIDINE
     Dosage: UNK
  37. VALPROIC ACID. [Suspect]
     Active Substance: VALPROIC ACID
     Dosage: UNK
  38. ZESTRIL [Suspect]
     Active Substance: LISINOPRIL
     Dosage: UNK
  39. AMLODIPINE BESILATE [Suspect]
     Active Substance: AMLODIPINE BESYLATE
     Dosage: UNK
  40. ATENOLOL. [Suspect]
     Active Substance: ATENOLOL
     Dosage: UNK
  41. CORGARD [Suspect]
     Active Substance: NADOLOL
     Dosage: UNK
  42. ASPARTAME [Suspect]
     Active Substance: ASPARTAME
     Dosage: UNK

REACTIONS (1)
  - Drug hypersensitivity [Unknown]
